FAERS Safety Report 18330221 (Version 2)
Quarter: 2021Q2

REPORT INFORMATION
  Report Type: Spontaneous
  Country: US (occurrence: US)
  Receive Date: 20200930
  Receipt Date: 20210406
  Transmission Date: 20210717
  Serious: Yes (Death, Other)
  Sender: FDA-Public Use
  Company Number: US-ASTRAZENECA-2020SF24152

PATIENT
  Age: 26254 Day
  Sex: Male
  Weight: 117 kg

DRUGS (76)
  1. ALLOPURINOL. [Concomitant]
     Active Substance: ALLOPURINOL
  2. HYDROCODONE [Concomitant]
     Active Substance: HYDROCODONE
  3. SERTRALINE [Concomitant]
     Active Substance: SERTRALINE HYDROCHLORIDE
  4. GLIMEPIRIDE. [Concomitant]
     Active Substance: GLIMEPIRIDE
  5. BUMETANIDE. [Concomitant]
     Active Substance: BUMETANIDE
  6. PRADAXA [Concomitant]
     Active Substance: DABIGATRAN ETEXILATE MESYLATE
  7. LIDOCAINE. [Concomitant]
     Active Substance: LIDOCAINE
  8. MECLIZINE [Concomitant]
     Active Substance: MECLIZINE HYDROCHLORIDE
  9. PANTOPRAZOLE [Suspect]
     Active Substance: PANTOPRAZOLE
     Indication: GASTROOESOPHAGEAL REFLUX DISEASE
     Dosage: GENERIC40.0MG UNKNOWN
     Route: 065
     Dates: start: 2010, end: 2014
  10. CALCIUM CARBONATE. [Concomitant]
     Active Substance: CALCIUM CARBONATE
  11. CARVEDILOL. [Concomitant]
     Active Substance: CARVEDILOL
  12. PARICALCITOL. [Concomitant]
     Active Substance: PARICALCITOL
  13. BENZONATATE. [Concomitant]
     Active Substance: BENZONATATE
  14. FLOVENT [Concomitant]
     Active Substance: FLUTICASONE PROPIONATE
  15. AMIODARONE [Concomitant]
     Active Substance: AMIODARONE
  16. CLOTRIMAZOLE. [Concomitant]
     Active Substance: CLOTRIMAZOLE
  17. VENTOLIN HFA [Concomitant]
     Active Substance: ALBUTEROL SULFATE
  18. WARFARIN SODIUM. [Concomitant]
     Active Substance: WARFARIN SODIUM
  19. DILTIAZEM. [Concomitant]
     Active Substance: DILTIAZEM
  20. RANEXA [Concomitant]
     Active Substance: RANOLAZINE
  21. CRESTOR [Concomitant]
     Active Substance: ROSUVASTATIN CALCIUM
  22. LOSARTAN. [Concomitant]
     Active Substance: LOSARTAN
  23. BYSTOLIC [Concomitant]
     Active Substance: NEBIVOLOL HYDROCHLORIDE
  24. CETIRIZINE [Concomitant]
     Active Substance: CETIRIZINE HYDROCHLORIDE
  25. PROPOXYPHENE. [Concomitant]
     Active Substance: PROPOXYPHENE
  26. NEXIUM [Suspect]
     Active Substance: ESOMEPRAZOLE MAGNESIUM
     Indication: GASTROOESOPHAGEAL REFLUX DISEASE
     Route: 048
     Dates: start: 2010, end: 2017
  27. HYDROCODONE BITARTRATE AND ACETAMINOPHEN [Concomitant]
     Active Substance: ACETAMINOPHEN\HYDROCODONE BITARTRATE
  28. METOPROLOL TARTRATE. [Concomitant]
     Active Substance: METOPROLOL TARTRATE
  29. ALLEGRA [Concomitant]
     Active Substance: FEXOFENADINE HYDROCHLORIDE
  30. LIVALO [Concomitant]
     Active Substance: PITAVASTATIN CALCIUM
  31. POLYETHYLENE GLYCOL [Concomitant]
     Active Substance: POLYETHYLENE GLYCOLS
  32. HYOSCYAMINE. [Concomitant]
     Active Substance: HYOSCYAMINE
  33. MINOXIDIL. [Concomitant]
     Active Substance: MINOXIDIL
  34. TRIAMTERENE. [Concomitant]
     Active Substance: TRIAMTERENE
  35. ASPIRIN. [Concomitant]
     Active Substance: ASPIRIN
  36. ATORVASTATIN [Concomitant]
     Active Substance: ATORVASTATIN
  37. TICAGRELOR. [Concomitant]
     Active Substance: TICAGRELOR
  38. PRAVASTATIN. [Concomitant]
     Active Substance: PRAVASTATIN
  39. PROMETHAZINE [Concomitant]
     Active Substance: PROMETHAZINE HYDROCHLORIDE
  40. INDOMETHACIN. [Concomitant]
     Active Substance: INDOMETHACIN
  41. FERROUS SULFATE. [Concomitant]
     Active Substance: FERROUS SULFATE
  42. PRASUGREL. [Concomitant]
     Active Substance: PRASUGREL
  43. ZOLOFT [Concomitant]
     Active Substance: SERTRALINE HYDROCHLORIDE
  44. METHYLPREDNISOLONE. [Concomitant]
     Active Substance: METHYLPREDNISOLONE
  45. ANORO ELLIPTA [Concomitant]
     Active Substance: UMECLIDINIUM BROMIDE\VILANTEROL TRIFENATATE
  46. ELIQUIS [Concomitant]
     Active Substance: APIXABAN
  47. DIGOXIN. [Concomitant]
     Active Substance: DIGOXIN
  48. NIFEDIPINE. [Concomitant]
     Active Substance: NIFEDIPINE
  49. CEPHALEXIN. [Concomitant]
     Active Substance: CEPHALEXIN
  50. METOLAZONE. [Concomitant]
     Active Substance: METOLAZONE
  51. TEMAZEPAM. [Concomitant]
     Active Substance: TEMAZEPAM
  52. ZOLPIDEM [Concomitant]
     Active Substance: ZOLPIDEM TARTRATE
  53. PREDNISONE. [Concomitant]
     Active Substance: PREDNISONE
  54. CYCLOBENZAPRINE. [Concomitant]
     Active Substance: CYCLOBENZAPRINE
  55. VIAGRA [Concomitant]
     Active Substance: SILDENAFIL CITRATE
  56. NEXIUM [Suspect]
     Active Substance: ESOMEPRAZOLE MAGNESIUM
     Indication: GASTROOESOPHAGEAL REFLUX DISEASE
     Dosage: 40.0MG UNKNOWN
     Route: 048
     Dates: start: 2011, end: 2017
  57. ERGOCALCIFEROL. [Concomitant]
     Active Substance: ERGOCALCIFEROL
  58. ISOSORBIDE MONONITRATE. [Concomitant]
     Active Substance: ISOSORBIDE MONONITRATE
  59. LOPERAMIDE [Concomitant]
     Active Substance: LOPERAMIDE
  60. ONDANSETRON [Concomitant]
     Active Substance: ONDANSETRON
  61. NITRO?DUR [Concomitant]
     Active Substance: NITROGLYCERIN
  62. QVAR [Concomitant]
     Active Substance: BECLOMETHASONE DIPROPIONATE
  63. NEPRO [Concomitant]
     Active Substance: DIETARY SUPPLEMENT
  64. XOPENEX [Concomitant]
     Active Substance: LEVALBUTEROL HYDROCHLORIDE
  65. DIPHENOXYLATE/ ATROPINE [Concomitant]
  66. FLUTICASONE. [Concomitant]
     Active Substance: FLUTICASONE
  67. ACETYLCYSTEINE. [Concomitant]
     Active Substance: ACETYLCYSTEINE
  68. PLAVIX [Concomitant]
     Active Substance: CLOPIDOGREL BISULFATE
  69. ADVAIR DISKUS [Concomitant]
     Active Substance: FLUTICASONE PROPIONATE\SALMETEROL XINAFOATE
  70. DARBEPOETIN [Concomitant]
     Active Substance: DARBEPOETIN ALFA
  71. AMLODIPINE BESYLATE. [Concomitant]
     Active Substance: AMLODIPINE BESYLATE
  72. FAMOTIDINE. [Concomitant]
     Active Substance: FAMOTIDINE
  73. BREO ELLIPTA [Concomitant]
     Active Substance: FLUTICASONE FUROATE\VILANTEROL TRIFENATATE
  74. ANUCORT [Concomitant]
  75. CALCITRIOL. [Concomitant]
     Active Substance: CALCITRIOL
  76. FENOGLIDE [Concomitant]
     Active Substance: FENOFIBRATE

REACTIONS (6)
  - End stage renal disease [Fatal]
  - Respiratory failure [Fatal]
  - Chronic kidney disease [Unknown]
  - Renal failure [Not Recovered/Not Resolved]
  - Cerebral vascular occlusion [Fatal]
  - Chronic obstructive pulmonary disease [Fatal]

NARRATIVE: CASE EVENT DATE: 20150115
